FAERS Safety Report 7294667-0 (Version None)
Quarter: 2011Q1

REPORT INFORMATION
  Report Type: 
  Country: None (occurrence: None)
  Receive Date: 20110203
  Receipt Date: 20110117
  Transmission Date: 20110831
  Serious: Yes (Hospitalization)
  Sender: FDA-Public Use
  Company Number: ACO_21526_2011

PATIENT
  Age: 63 Year
  Sex: Male

DRUGS (3)
  1. AMPYRA [Suspect]
  2. BACLOFEN [Concomitant]
  3. AMPYRA [Suspect]
     Indication: GAIT DISTURBANCE
     Dosage: 10 MG, BID, ORAL
     Route: 048
     Dates: start: 20100930, end: 20101102

REACTIONS (3)
  - ASTHENIA [None]
  - PNEUMONIA [None]
  - URINARY TRACT INFECTION [None]
